FAERS Safety Report 4789255-1 (Version None)
Quarter: 2005Q4

REPORT INFORMATION
  Report Type: 
  Country: None (occurrence: None)
  Receive Date: 20051004
  Receipt Date: 20050920
  Transmission Date: 20060501
  Serious: Yes (Hospitalization)
  Sender: FDA-Public Use
  Company Number: US_0508121197

PATIENT
  Age: 44 Year
  Sex: Male

DRUGS (1)
  1. FORTEO [Suspect]
     Indication: OSTEOPOROSIS
     Dates: start: 20040301

REACTIONS (4)
  - FALL [None]
  - JOINT DISLOCATION [None]
  - PERONEAL MUSCULAR ATROPHY [None]
  - UPPER LIMB FRACTURE [None]
